FAERS Safety Report 21435163 (Version 2)
Quarter: 2023Q1

REPORT INFORMATION
  Report Type: Other
  Country: DE (occurrence: None)
  Receive Date: 20221010
  Receipt Date: 20230112
  Transmission Date: 20230417
  Serious: No
  Sender: FDA-Public Use
  Company Number: DE-ROCHE-2400697

PATIENT
  Age: 62 Year
  Sex: Female

DRUGS (12)
  1. OCREVUS [Suspect]
     Active Substance: OCRELIZUMAB
     Indication: Secondary progressive multiple sclerosis
     Route: 042
     Dates: start: 20181004
  2. OCREVUS [Suspect]
     Active Substance: OCRELIZUMAB
     Route: 042
     Dates: start: 20181018
  3. OCREVUS [Suspect]
     Active Substance: OCRELIZUMAB
     Route: 042
     Dates: start: 20190429
  4. OCREVUS [Suspect]
     Active Substance: OCRELIZUMAB
     Route: 042
     Dates: start: 20191120
  5. OCREVUS [Suspect]
     Active Substance: OCRELIZUMAB
     Dosage: THEN 600 MG EVERY 266 DAYS
     Route: 042
     Dates: start: 20210811
  6. VAXZEVRIA [Suspect]
     Active Substance: AZD-1222
     Indication: COVID-19
     Dosage: NEXT DOSE ON 24/JUN/2021
     Route: 065
     Dates: start: 20210409
  7. MICTONORM UNO [Concomitant]
     Dosage: 1-0-1
  8. CITALOPRAM [Concomitant]
     Active Substance: CITALOPRAM HYDROBROMIDE
     Dosage: 1-0-0
  9. CARVEDILOL [Concomitant]
     Active Substance: CARVEDILOL
     Dosage: 0.5 IN 1 DAY
     Route: 048
  10. LACTOSEVEN [Concomitant]
     Dosage: DAYS, DAILY
  11. CORTISONE [Concomitant]
     Active Substance: CORTISONE
     Indication: Osteoporosis
  12. GABAPENTIN [Concomitant]
     Active Substance: GABAPENTIN
     Dosage: 100 MG (0-0-1)

REACTIONS (15)
  - Oropharyngeal pain [Recovered/Resolved]
  - Dysphonia [Recovered/Resolved]
  - Cognitive disorder [Recovered/Resolved]
  - Off label use [Unknown]
  - Laryngeal injury [Unknown]
  - Headache [Recovered/Resolved]
  - Hypotonia [Recovered/Resolved]
  - Muscle spasticity [Recovered/Resolved]
  - Muscular weakness [Recovered/Resolved]
  - Balance disorder [Not Recovered/Not Resolved]
  - Dizziness [Recovered/Resolved]
  - Vertigo [Recovered/Resolved]
  - Asthenia [Recovered/Resolved]
  - Malaise [Recovered/Resolved]
  - COVID-19 [Recovered/Resolved]

NARRATIVE: CASE EVENT DATE: 20181004
